FAERS Safety Report 23693058 (Version 1)
Quarter: 2024Q2

REPORT INFORMATION
  Report Type: Spontaneous
  Country: CN (occurrence: CN)
  Receive Date: 20240401
  Receipt Date: 20240401
  Transmission Date: 20240716
  Serious: Yes (Life-Threatening, Other)
  Sender: FDA-Public Use
  Company Number: CN-SA-SAC20240329000061

PATIENT
  Age: 68 Year
  Sex: Male
  Weight: 63.5 kg

DRUGS (7)
  1. CLOPIDOGREL BISULFATE [Suspect]
     Active Substance: CLOPIDOGREL BISULFATE
     Indication: Angina unstable
     Dosage: 300 MG, QD
     Route: 048
     Dates: start: 20240310, end: 20240310
  2. CLOPIDOGREL BISULFATE [Suspect]
     Active Substance: CLOPIDOGREL BISULFATE
     Dosage: 75 MG, QD
     Route: 048
     Dates: start: 20240310, end: 20240312
  3. ASPIRIN [Suspect]
     Active Substance: ASPIRIN
     Indication: Angina unstable
     Dosage: 300MG
     Route: 048
     Dates: start: 20240310, end: 20240310
  4. ASPIRIN [Suspect]
     Active Substance: ASPIRIN
     Dosage: 100 MG, QD
     Route: 048
     Dates: start: 20240310, end: 20240311
  5. ATORVASTATIN CALCIUM [Suspect]
     Active Substance: ATORVASTATIN CALCIUM
     Indication: Angina unstable
     Dosage: 20 MG, QD
     Route: 048
     Dates: start: 20240310, end: 20240318
  6. ENOXAPARIN SODIUM [Suspect]
     Active Substance: ENOXAPARIN SODIUM
     Indication: Angina unstable
     Dosage: 0.4 ML, BID
     Route: 058
     Dates: start: 20240310, end: 20240311
  7. PANTOPRAZOLE SODIUM [Concomitant]
     Active Substance: PANTOPRAZOLE SODIUM
     Indication: Angina unstable
     Dosage: 40 MG, QD
     Route: 048
     Dates: start: 20240310, end: 20240312

REACTIONS (7)
  - Gastritis erosive [Recovering/Resolving]
  - Upper gastrointestinal haemorrhage [Recovered/Resolved]
  - Blood loss anaemia [Recovering/Resolving]
  - Eructation [Recovered/Resolved]
  - Regurgitation [Recovering/Resolving]
  - Melaena [Recovering/Resolving]
  - Gastric ulcer haemorrhage [Recovering/Resolving]

NARRATIVE: CASE EVENT DATE: 20240311
